FAERS Safety Report 8926903 (Version 3)
Quarter: 2012Q4

REPORT INFORMATION
  Report Type: 
  Country: BE (occurrence: BE)
  Receive Date: 20121127
  Receipt Date: 20121221
  Transmission Date: 20130627
  Serious: Yes (Death, Other)
  Sender: FDA-Public Use
  Company Number: BE-JNJFOC-20121112532

PATIENT
  Sex: Male

DRUGS (8)
  1. XARELTO [Suspect]
     Indication: CEREBROVASCULAR ACCIDENT PROPHYLAXIS
     Route: 048
     Dates: start: 20120531
  2. XARELTO [Suspect]
     Indication: ATRIAL FIBRILLATION
     Route: 048
     Dates: start: 20120531
  3. FOLIC ACID [Concomitant]
     Route: 065
  4. COVERSYL [Concomitant]
     Route: 065
  5. BURINEX [Concomitant]
     Route: 065
  6. MEDROL [Concomitant]
     Indication: RHEUMATOID ARTHRITIS
     Route: 065
  7. EMCONCOR [Concomitant]
     Route: 065
  8. LEDERTREXATE [Concomitant]
     Route: 065

REACTIONS (3)
  - Cerebral haemorrhage [Fatal]
  - Skull fracture [Unknown]
  - Fall [Unknown]
